FAERS Safety Report 5217509-3 (Version None)
Quarter: 2007Q1

REPORT INFORMATION
  Report Type: 
  Country: None (occurrence: None)
  Receive Date: 20070124
  Receipt Date: 20070118
  Transmission Date: 20070707
  Serious: Yes (Hospitalization)
  Sender: FDA-Public Use
  Company Number: US-SANOFI-SYNTHELABO-F01200700068

PATIENT
  Sex: Female
  Weight: 81.4 kg

DRUGS (20)
  1. RYTHMOL [Concomitant]
     Indication: ATRIAL FIBRILLATION
     Dosage: 300 MG (1/2 TABLET) THREE TIMES A DAY
     Route: 048
  2. TYLENOL [Concomitant]
     Indication: PAIN
     Dosage: TAKEN OVER THE COUNTER AS NEEDED
     Route: 065
  3. TYLENOL [Concomitant]
     Indication: HEADACHE
     Dosage: TAKEN OVER THE COUNTER AS NEEDED
     Route: 065
  4. LIPITOR [Concomitant]
     Indication: HYPERLIPIDAEMIA
     Route: 048
  5. LANOXIN [Concomitant]
     Indication: ATRIAL FIBRILLATION
     Route: 065
  6. BEVACIZUMAB [Suspect]
     Route: 041
     Dates: start: 20070110, end: 20070110
  7. DOCETAXEL [Suspect]
     Route: 041
     Dates: start: 20061108, end: 20061108
  8. OXALIPLATIN [Suspect]
     Route: 041
     Dates: start: 20061108, end: 20061108
  9. TAGAMET [Concomitant]
     Indication: RASH
     Dosage: TAKEN OVER THE COUNTER
     Route: 065
     Dates: start: 20061011, end: 20061014
  10. BENADRYL [Concomitant]
     Indication: RASH
     Route: 065
     Dates: start: 20061011, end: 20061014
  11. EMLA [Concomitant]
     Dosage: APPLY TO IVAD SITE 1 HOUR PRIOR TO ACCESS
     Route: 061
     Dates: start: 20060724
  12. COMPAZINE [Concomitant]
     Indication: NAUSEA
     Dosage: 10 MG EVERY 6 HOURS AS NEEDED
     Route: 065
     Dates: start: 20060724
  13. COMPAZINE [Concomitant]
     Indication: VOMITING
     Dosage: 10 MG EVERY 6 HOURS AS NEEDED
     Route: 065
     Dates: start: 20060724
  14. COUMADIN [Concomitant]
     Route: 048
  15. ZOFRAN [Concomitant]
     Indication: NAUSEA
     Dosage: 8 MG EVERY 12 HOURS AS NEEDED
     Route: 065
     Dates: start: 20060724
  16. ZOFRAN [Concomitant]
     Indication: VOMITING
     Dosage: 8 MG EVERY 12 HOURS AS NEEDED
     Route: 065
     Dates: start: 20060724
  17. DECADRON [Concomitant]
     Indication: NAUSEA
     Dosage: (PRE-MED) 8 MG 12 HOURS PRIOR TO TAXOTERE AND AFTER
     Route: 065
     Dates: start: 20060723, end: 20061109
  18. DECADRON [Concomitant]
     Indication: VOMITING
     Dosage: (PRE-MED) 8 MG 12 HOURS PRIOR TO TAXOTERE AND AFTER
     Route: 065
     Dates: start: 20060723, end: 20061109
  19. PERCOCET [Concomitant]
     Indication: PAIN
     Dosage: 5/325 MG 1-2 TABLETS EVERY 6 HOURS
     Route: 048
  20. ARICEPT [Concomitant]
     Indication: DEMENTIA ALZHEIMER'S TYPE
     Route: 048
     Dates: start: 20060710

REACTIONS (1)
  - TRANSIENT ISCHAEMIC ATTACK [None]
